FAERS Safety Report 19383238 (Version 1)
Quarter: 2021Q2

REPORT INFORMATION
  Report Type: Spontaneous
  Country: US (occurrence: US)
  Receive Date: 20210608
  Receipt Date: 20210608
  Transmission Date: 20210717
  Serious: Yes (Hospitalization, Other)
  Sender: FDA-Public Use
  Company Number: US-SUN PHARMACEUTICAL INDUSTRIES LTD-2021R1-299050

PATIENT
  Age: 60 Year
  Sex: Female

DRUGS (2)
  1. OCTREOTIDE. [Suspect]
     Active Substance: OCTREOTIDE
     Indication: METASTASIS
     Dosage: LONG ACTING RELEASE
     Route: 065
  2. TEMOZOLOMIDE. [Suspect]
     Active Substance: TEMOZOLOMIDE
     Indication: METASTASIS
     Dosage: UNK
     Route: 048

REACTIONS (5)
  - Ascites [Unknown]
  - Diarrhoea [Unknown]
  - Decreased appetite [Unknown]
  - Acute hepatic failure [Unknown]
  - Mental status changes [Unknown]
